FAERS Safety Report 9906262 (Version 2)
Quarter: 2014Q1

REPORT INFORMATION
  Report Type: Spontaneous
  Country: GB (occurrence: GB)
  Receive Date: 20140218
  Receipt Date: 20140218
  Transmission Date: 20141002
  Serious: Yes (Hospitalization)
  Sender: FDA-Public Use
  Company Number: GB-TAKEDA-2014TJP000647

PATIENT
  Age: 2 Year
  Sex: Female

DRUGS (4)
  1. ZOTON FASTAB [Suspect]
     Indication: PRODUCT USED FOR UNKNOWN INDICATION
     Dosage: 5 MG, IN THE MORNING
     Route: 048
     Dates: start: 20131220
  2. BACLOFEN [Concomitant]
  3. EPILIM [Concomitant]
  4. TRIHEXYPHENIDYL [Concomitant]

REACTIONS (2)
  - Musculoskeletal stiffness [Recovered/Resolved]
  - Viral infection [Recovered/Resolved]
